FAERS Safety Report 6663001-9 (Version None)
Quarter: 2010Q2

REPORT INFORMATION
  Report Type: 
  Country: None (occurrence: None)
  Receive Date: 20100401
  Receipt Date: 20100322
  Transmission Date: 20101027
  Serious: Yes (Other)
  Sender: FDA-Public Use
  Company Number: US-JNJFOC-20080706110

PATIENT
  Sex: Female
  Weight: 49.9 kg

DRUGS (7)
  1. REMICADE [Suspect]
     Indication: CROHN'S DISEASE
     Route: 042
  2. REMICADE [Suspect]
     Dosage: EVERY 8-10 WEEKS SINCE 08-SEP-2006
     Route: 042
  3. ELIDEL [Concomitant]
     Indication: ECZEMA
  4. COLOZAL [Concomitant]
     Indication: CROHN'S DISEASE
  5. TOPROL-XL [Concomitant]
     Indication: BLOOD PRESSURE
  6. LUNESTA [Concomitant]
     Indication: SLEEP DISORDER THERAPY
  7. VITAMINS [Concomitant]

REACTIONS (4)
  - BASAL CELL CARCINOMA [None]
  - DERMATITIS PSORIASIFORM [None]
  - ECZEMA [None]
  - PSORIASIS [None]
